FAERS Safety Report 5606392-X (Version None)
Quarter: 2008Q1

REPORT INFORMATION
  Report Type: 
  Country: None (occurrence: None)
  Receive Date: 20080129
  Receipt Date: 20070919
  Transmission Date: 20080703
  Serious: No
  Sender: FDA-Public Use
  Company Number: A0680361A

PATIENT
  Age: 37 Year
  Sex: Female

DRUGS (2)
  1. BUPROPION HCL [Suspect]
     Indication: EMOTIONAL DISORDER
     Dosage: 100MG PER DAY
     Dates: start: 20060101
  2. YASMIN [Concomitant]
     Indication: EMOTIONAL DISORDER
     Dates: start: 20060101

REACTIONS (3)
  - BLOOD URINE PRESENT [None]
  - HAEMORRHAGE URINARY TRACT [None]
  - PHARMACEUTICAL PRODUCT COMPLAINT [None]
